FAERS Safety Report 13397016 (Version 1)
Quarter: 2017Q2

REPORT INFORMATION
  Report Type: Spontaneous
  Country: US (occurrence: US)
  Receive Date: 20170403
  Receipt Date: 20170403
  Transmission Date: 20170830
  Serious: No
  Sender: FDA-Public Use
  Company Number: US-JNJFOC-20170218735

PATIENT
  Age: 52 Year
  Sex: Male
  Weight: 68.04 kg

DRUGS (3)
  1. PREZISTA [Suspect]
     Active Substance: DARUNAVIR ETHANOLATE
     Indication: HIV INFECTION
     Route: 048
  2. INTELENCE [Suspect]
     Active Substance: ETRAVIRINE
     Indication: HIV INFECTION
     Dosage: 200MG/ 2TABLETS ONCE A DAY
     Route: 048
  3. NORVIR [Concomitant]
     Active Substance: RITONAVIR
     Route: 065

REACTIONS (1)
  - Neuropathy peripheral [Unknown]
